FAERS Safety Report 21833333 (Version 7)
Quarter: 2023Q1

REPORT INFORMATION
  Report Type: Spontaneous
  Country: US (occurrence: US)
  Receive Date: 20230107
  Receipt Date: 20230308
  Transmission Date: 20230417
  Serious: Yes (Death, Hospitalization, Other)
  Sender: FDA-Public Use
  Company Number: US-UNITED THERAPEUTICS-UNT-2022-032603

PATIENT
  Age: 55 Year
  Sex: Male
  Weight: 88.889 kg

DRUGS (8)
  1. REMODULIN [Suspect]
     Active Substance: TREPROSTINIL
     Indication: Pulmonary arterial hypertension
     Dosage: 0.030 ?G/KG (2.1ML/CASSETTE AT PUMP RATE 66 MCL/HOUR), CONTINUING
     Route: 058
     Dates: start: 202212
  2. REMODULIN [Suspect]
     Active Substance: TREPROSTINIL
     Dosage: UNK, CONTINUING
     Route: 058
     Dates: start: 20221215
  3. REMODULIN [Suspect]
     Active Substance: TREPROSTINIL
     Indication: Pulmonary arterial hypertension
     Dosage: 0.031 ?G/KG (SELF-FILL WITH 2.9 ML PER CASSETTE AT A PUMP RATE OF 34 MCL PER HOUR), CONTINUING
     Route: 058
  4. REMODULIN [Suspect]
     Active Substance: TREPROSTINIL
     Indication: Pulmonary arterial hypertension
     Dosage: 0.033 ?G/KG (SELF-FILL WITH 2.9 ML/CASSETTE AT A PUMP RATE OF 33 MCL/HOUR), CONTINUING
     Route: 058
     Dates: end: 20230131
  5. REMODULIN [Suspect]
     Active Substance: TREPROSTINIL
     Dosage: 0.060 ?G/KG (SELF-FILL WITH 2.9ML PER CASSETTE AT A PUMP RATE OF 33 MCL/HOUR), CONTINUING
     Route: 058
  6. UPTRAVI [Concomitant]
     Active Substance: SELEXIPAG
     Indication: Product used for unknown indication
     Dosage: UNK
     Route: 065
  7. TADALAFIL [Concomitant]
     Active Substance: TADALAFIL
     Indication: Product used for unknown indication
     Dosage: UNK
     Route: 065
  8. LETAIRIS [Concomitant]
     Active Substance: AMBRISENTAN
     Indication: Product used for unknown indication
     Dosage: UNK
     Route: 065

REACTIONS (17)
  - Cardiogenic shock [Fatal]
  - Pulmonary arterial hypertension [Fatal]
  - Pulmonary veno-occlusive disease [Fatal]
  - Hypoxia [Fatal]
  - Dyspnoea [Fatal]
  - Systemic scleroderma [Fatal]
  - Infusion site reaction [Recovered/Resolved]
  - Nasopharyngitis [Recovered/Resolved]
  - Respiratory tract congestion [Recovered/Resolved]
  - Lower respiratory tract infection [Recovered/Resolved]
  - Infusion site discharge [Recovered/Resolved]
  - Purulent discharge [Recovered/Resolved]
  - Infusion site haemorrhage [Recovered/Resolved]
  - Nausea [Recovered/Resolved]
  - Myalgia [Recovered/Resolved]
  - Diarrhoea [Recovered/Resolved]
  - Pyrexia [Recovered/Resolved]

NARRATIVE: CASE EVENT DATE: 20221201
